FAERS Safety Report 19154937 (Version 2)
Quarter: 2021Q2

REPORT INFORMATION
  Report Type: Spontaneous
  Country: US (occurrence: US)
  Receive Date: 20210419
  Receipt Date: 20210423
  Transmission Date: 20210717
  Serious: No
  Sender: FDA-Public Use
  Company Number: US-SA-2021SA124538

PATIENT
  Age: 91 Year
  Sex: Female

DRUGS (1)
  1. IRBESARTAN WINTHROP [Suspect]
     Active Substance: IRBESARTAN
     Dosage: DRUG STRUCTURE DOSAGE : 150MG

REACTIONS (2)
  - Pruritus [Unknown]
  - Product physical issue [Unknown]
